FAERS Safety Report 4687702-7 (Version None)
Quarter: 2005Q2

REPORT INFORMATION
  Report Type: 
  Country: None (occurrence: None)
  Receive Date: 20050610
  Receipt Date: 19941028
  Transmission Date: 20051028
  Serious: Yes (Other)
  Sender: FDA-Public Use
  Company Number: 199404651HAG

PATIENT
  Age: 78 Year
  Sex: Female
  Weight: 48 kg

DRUGS (4)
  1. LASIX [Suspect]
  2. METHOTREXATE [Suspect]
     Indication: RHEUMATOID ARTHRITIS
     Dates: start: 19940201
  3. SLOW-K [Suspect]
     Dosage: DOSE: 1 DOSE UNSPECIFIED
  4. AMIODARONE HYDROCHLORIDE [Suspect]

REACTIONS (6)
  - COUGH [None]
  - DYSPNOEA [None]
  - FATIGUE [None]
  - LUNG INFILTRATION [None]
  - PYREXIA [None]
  - WEIGHT DECREASED [None]
